FAERS Safety Report 20002126 (Version 5)
Quarter: 2024Q1

REPORT INFORMATION
  Report Type: Spontaneous
  Country: US (occurrence: US)
  Receive Date: 20211027
  Receipt Date: 20240118
  Transmission Date: 20240409
  Serious: Yes (Life-Threatening, Other)
  Sender: FDA-Public Use
  Company Number: US-PFIZER INC-202101394428

PATIENT
  Age: 6 Decade
  Sex: Female

DRUGS (6)
  1. BUPIVACAINE HYDROCHLORIDE [Suspect]
     Active Substance: BUPIVACAINE HYDROCHLORIDE\BUPIVACAINE HYDROCHLORIDE ANHYDROUS
     Dosage: 8 ML
     Route: 008
  2. LIDOCAINE [Concomitant]
     Active Substance: LIDOCAINE
     Indication: Local anaesthesia
     Dosage: 2 ML
     Route: 061
  3. LIDOCAINE [Concomitant]
     Active Substance: LIDOCAINE
     Dosage: 3 ML
     Route: 008
  4. LIDOCAINE [Concomitant]
     Active Substance: LIDOCAINE
     Dosage: 200 MILLIGRAM, LOCAL INFILTRATION A LOCAL INFILTRATION OF 1% LIDOCAINE 20ML (200MG)......
  5. LIDOCAINE [Concomitant]
     Active Substance: LIDOCAINE
     Dosage: LIDOCAINE WAS GIVEN WITH FREQUENT ASPIRATION AND INCREMENTAL INJECTION
  6. IOHEXOL [Concomitant]
     Active Substance: IOHEXOL
     Dosage: 1 MILLILITER, 1 ML OF 180 MG IODINE/ ML
     Route: 008

REACTIONS (6)
  - Respiratory failure [Unknown]
  - PO2 decreased [Unknown]
  - Tachycardia [Unknown]
  - Hypertension [Unknown]
  - Tachypnoea [Unknown]
  - Respiratory rate increased [Unknown]
